FAERS Safety Report 8506486-5 (Version None)
Quarter: 2012Q3

REPORT INFORMATION
  Report Type: 
  Country: None (occurrence: None)
  Receive Date: 20120712
  Receipt Date: 20120705
  Transmission Date: 20120928
  Serious: Yes (Hospitalization)
  Sender: FDA-Public Use
  Company Number: FR-UCBSA-061169

PATIENT
  Age: 44 Year
  Sex: Female

DRUGS (21)
  1. TRAMADOL HCL [Concomitant]
  2. FERROUS SULFATE TAB [Concomitant]
  3. TRANSIPEG [Concomitant]
     Dosage: 2 UNITS DAILY
  4. LEVOTHYROXINE SODIUM [Concomitant]
     Dosage: 75MCG DAILY
  5. AMITRIPTYLINE HCL [Concomitant]
     Dosage: AT NIGHT
     Route: 048
  6. FOLIC ACID [Concomitant]
  7. ESIDRIX [Concomitant]
     Indication: HYPERTENSION
     Dosage: A HALF UNIT DAILY
  8. ACETAMINOPHEN [Suspect]
     Indication: PAIN
     Route: 048
     Dates: start: 20120117, end: 20120127
  9. PERINDOPRIL ERBUMINE [Concomitant]
     Indication: HYPERTENSION
     Dosage: 2MG DAILY
  10. ACUPAN [Concomitant]
     Dosage: 4 UNITS DAILY
  11. PANTOPRAZOLE [Concomitant]
     Dosage: 40MG DAILY
  12. CACIT D3 [Concomitant]
     Dosage: ONE UNIT DAILY
  13. VALACYCLOVIR HYDROCHLORIDE [Concomitant]
     Dosage: ONE UNIT THREE TIMES DAILY
  14. EUPRESSYL [Concomitant]
     Indication: HYPERTENSION
  15. AMLODIPINE BESYLATE [Concomitant]
     Indication: HYPERTENSION
  16. PLAQUENIL [Concomitant]
     Dosage: DAILY DOSE: 200 MG
  17. PREDNISOLONE [Concomitant]
     Dosage: DAILY DOSE: 20 MG
  18. ASPIRIN [Concomitant]
     Dosage: 75MG DAILY
  19. ATORVASTATIN [Concomitant]
     Dosage: 20MG DAILY
  20. SPASFON [Concomitant]
     Dosage: 2 UNITS DAILY
  21. XYZAL [Suspect]
     Indication: RASH
     Dosage: 5 MG DAILY
     Route: 048
     Dates: start: 20120119, end: 20120127

REACTIONS (2)
  - HEPATITIS CHOLESTATIC [None]
  - CYTOLYTIC HEPATITIS [None]
